FAERS Safety Report 8872566 (Version 2)
Quarter: 2012Q4

REPORT INFORMATION
  Report Type: 
  Country: DE (occurrence: DE)
  Receive Date: 20121029
  Receipt Date: 20121221
  Transmission Date: 20130627
  Serious: Yes (Other)
  Sender: FDA-Public Use
  Company Number: PHHY2012DE095725

PATIENT
  Age: 82 Year
  Sex: Male
  Weight: 75 kg

DRUGS (9)
  1. EXJADE [Suspect]
     Indication: MYELODYSPLASTIC SYNDROME
     Dates: start: 2009, end: 201105
  2. EXJADE [Suspect]
     Dosage: 500 mg, BID
     Route: 048
     Dates: start: 20120912
  3. OMEPRAZOLE [Concomitant]
  4. METOPROLOL [Concomitant]
     Indication: HYPERTENSION
  5. RAMIPRIL [Concomitant]
     Indication: HYPERTENSION
  6. MIRTAZAPINE [Concomitant]
     Indication: DEPRESSION
  7. DECORTIN [Concomitant]
  8. ASS [Concomitant]
  9. BLOOD TRANSFUSION, AUXILIARY PRODUCTS [Concomitant]
     Dosage: UNK
     Dates: start: 20121212

REACTIONS (3)
  - Acute febrile neutrophilic dermatosis [Recovered/Resolved]
  - Diarrhoea [Recovered/Resolved]
  - Depression [Recovered/Resolved]
